FAERS Safety Report 21032699 (Version 1)
Quarter: 2022Q2

REPORT INFORMATION
  Report Type: Spontaneous
  Country: US (occurrence: None)
  Receive Date: 20220630
  Receipt Date: 20220630
  Transmission Date: 20220720
  Serious: Yes (Other)
  Sender: FDA-Public Use
  Company Number: None

PATIENT
  Age: 56 Year
  Sex: Female
  Weight: 66.68 kg

DRUGS (1)
  1. LYLLANA [Suspect]
     Active Substance: ESTRADIOL
     Indication: Premature menopause
     Dates: start: 20220609, end: 20220611

REACTIONS (2)
  - Dermatitis allergic [None]
  - Drug ineffective [None]
